FAERS Safety Report 13317874 (Version 8)
Quarter: 2018Q2

REPORT INFORMATION
  Report Type: Spontaneous
  Country: US (occurrence: US)
  Receive Date: 20170310
  Receipt Date: 20180411
  Transmission Date: 20180711
  Serious: No
  Sender: FDA-Public Use
  Company Number: US-PFIZER INC-2017097661

PATIENT
  Age: 58 Year
  Sex: Female
  Weight: 93 kg

DRUGS (1)
  1. XELJANZ [Suspect]
     Active Substance: TOFACITINIB CITRATE
     Indication: RHEUMATOID ARTHRITIS
     Dosage: 5 MG, TWICE A DAY
     Route: 048
     Dates: start: 20170301

REACTIONS (9)
  - Abdominal discomfort [Unknown]
  - Eye pain [Unknown]
  - Condition aggravated [Unknown]
  - Oral pain [Unknown]
  - Dyspepsia [Unknown]
  - Visual impairment [Unknown]
  - Herpes zoster [Recovered/Resolved]
  - Red blood cell sedimentation rate increased [Unknown]
  - Pain [Unknown]
